FAERS Safety Report 9936928 (Version 1)
Quarter: 2014Q1

REPORT INFORMATION
  Report Type: Spontaneous
  Country: US (occurrence: None)
  Receive Date: 20140115
  Receipt Date: 20140115
  Transmission Date: 20141002
  Serious: No
  Sender: FDA-Public Use
  Company Number: 2013US002633

PATIENT
  Age: 26 Year
  Sex: Male
  Weight: 94 kg

DRUGS (5)
  1. ICLUSIG (PONATINIB) TABLET, 45 MG [Suspect]
     Indication: ACUTE LYMPHOCYTIC LEUKAEMIA
     Route: 048
  2. MAGNESIUM (MAGNESIUM) [Concomitant]
  3. VALTREX (VALACICLOVIR HYDROCHLORIDE) [Concomitant]
  4. OXYCODONE (OXYCODONE) [Concomitant]
  5. VORICONAZOLE (VORICONAZOLE) [Concomitant]

REACTIONS (2)
  - Arthralgia [None]
  - Insomnia [None]
